FAERS Safety Report 7703820-0 (Version None)
Quarter: 2011Q3

REPORT INFORMATION
  Report Type: 
  Country: None (occurrence: None)
  Receive Date: 20110823
  Receipt Date: 20110811
  Transmission Date: 20111222
  Serious: Yes (Hospitalization)
  Sender: FDA-Public Use
  Company Number: US-ROCHE-789434

PATIENT
  Age: 58 Year
  Sex: Female
  Weight: 70.1 kg

DRUGS (3)
  1. PACLITAXEL [Suspect]
     Indication: OVARIAN EPITHELIAL CANCER
     Dosage: TOTAL DOSE ADMINISTERED THIS COURSE 284 MG IV OVER 1 HOUR ON DAYS 1,8 + 15 (CYCLES 1-6)
     Route: 042
     Dates: start: 20110216
  2. CARBOPLATIN [Suspect]
     Indication: OVARIAN EPITHELIAL CANCER
     Dosage: AUC 6 IV ON DAY1 (CYCLE1-6), LAST DOSE PRIOR TO SAE: 19 APR 2011
     Route: 042
     Dates: start: 20110216
  3. BEVACIZUMAB [Suspect]
     Indication: OVARIAN EPITHELIAL CANCER
     Dosage: TOTAL DOSE ADMINISTERED TIS COURSE 1125 MG.IV OVER 30-90 MINUTES ON DAY 1 OF CYCLES 2+
     Route: 042
     Dates: start: 20110216

REACTIONS (2)
  - RENAL FAILURE ACUTE [None]
  - FEBRILE NEUTROPENIA [None]
